FAERS Safety Report 5834304-2 (Version None)
Quarter: 2008Q3

REPORT INFORMATION
  Report Type: 
  Country: None (occurrence: None)
  Receive Date: 20080722
  Receipt Date: 20071112
  Transmission Date: 20090109
  Serious: Yes (Hospitalization)
  Sender: FDA-Public Use
  Company Number: 2007BI024161

PATIENT
  Age: 27 Year
  Sex: Female

DRUGS (2)
  1. AVONEX [Suspect]
     Indication: MULTIPLE SCLEROSIS
     Dosage: 15 UG;QW;IM; 30 UG;QW;IM
     Route: 030
     Dates: start: 20070529, end: 20070601
  2. AVONEX [Suspect]
     Indication: MULTIPLE SCLEROSIS
     Dosage: 15 UG;QW;IM; 30 UG;QW;IM
     Route: 030
     Dates: start: 20070601

REACTIONS (2)
  - DEPRESSED MOOD [None]
  - MULTIPLE SCLEROSIS RELAPSE [None]
